FAERS Safety Report 10026259 (Version 1)
Quarter: 2014Q1

REPORT INFORMATION
  Report Type: Spontaneous
  Country: US (occurrence: US)
  Receive Date: 20140320
  Receipt Date: 20140320
  Transmission Date: 20141002
  Serious: No
  Sender: FDA-Public Use
  Company Number: US-GILEAD-2014-0096921

PATIENT
  Sex: Male

DRUGS (3)
  1. STRIBILD [Suspect]
     Indication: HIV INFECTION
     Dosage: 1 DF, QD
     Route: 048
     Dates: start: 201310
  2. ATRIPLA [Concomitant]
     Dosage: UNK
     Route: 065
     Dates: end: 201310
  3. OMEPRAZOLE [Concomitant]
     Indication: HYPERCHOLESTEROLAEMIA
     Route: 065

REACTIONS (4)
  - Hypercholesterolaemia [Not Recovered/Not Resolved]
  - Acne [Not Recovered/Not Resolved]
  - Abnormal dreams [Not Recovered/Not Resolved]
  - Terminal insomnia [Not Recovered/Not Resolved]
